FAERS Safety Report 6386511-0 (Version None)
Quarter: 2009Q4

REPORT INFORMATION
  Report Type: 
  Country: None (occurrence: None)
  Receive Date: 20091002
  Receipt Date: 20090618
  Transmission Date: 20100525
  Serious: No
  Sender: FDA-Public Use
  Company Number: US-ASTRAZENECA-2009UW16149

PATIENT
  Sex: Female
  Weight: 68 kg

DRUGS (8)
  1. ARIMIDEX [Suspect]
     Indication: BREAST CANCER
     Route: 048
     Dates: start: 20090518
  2. LOVAZA [Concomitant]
  3. CALCIUM MAGNESIUM [Concomitant]
  4. MULTIPLE VITAMINS [Concomitant]
  5. TUMERIC [Concomitant]
  6. RED RICE YEAST [Concomitant]
  7. NIACIN [Concomitant]
  8. COENZYME Q10 [Concomitant]

REACTIONS (7)
  - ALOPECIA [None]
  - FOOD ALLERGY [None]
  - HAIR TEXTURE ABNORMAL [None]
  - LATEX ALLERGY [None]
  - MUSCULOSKELETAL STIFFNESS [None]
  - PRURITUS [None]
  - SKIN IRRITATION [None]
